FAERS Safety Report 9262807 (Version 1)
Quarter: 2013Q2

REPORT INFORMATION
  Report Type: Spontaneous
  Country: US (occurrence: None)
  Receive Date: 20130419
  Receipt Date: 20130419
  Transmission Date: 20140414
  Serious: Yes (Other)
  Sender: FDA-Public Use
  Company Number: 2013035399

PATIENT
  Sex: Female
  Weight: 61.24 kg

DRUGS (10)
  1. HIZENTRA (IMMUNOGLOBULIN HUMAN NORMAL) [Suspect]
     Indication: IMMUNODEFICIENCY COMMON VARIABLE
     Dosage: 12 G 1X/WEEK, OVER 1-2 HOURS SUBCUTANEOUS
     Route: 058
     Dates: end: 20130406
  2. TYLENOL EX-STR (PARACETAMOL) [Concomitant]
  3. METOPROLOL TARTATE (METOPROLOL TARTATE) [Concomitant]
  4. TRAZODONE (TRAZODONE) [Concomitant]
  5. BUPROPION (BUPROPION) [Concomitant]
  6. CHLORTHIALIDONE (CHLORTALIDONE) [Concomitant]
  7. LEVOTHYROXINE (LEVOTHYROXINE) [Concomitant]
  8. DIPHENHYDRAMINE (DIPHENHYDRAMINE) [Concomitant]
  9. LIDOCAINE/PRILOSCAINE (EMLA) [Concomitant]
  10. EPI-PEN (EPINEPHRINE) [Concomitant]

REACTIONS (7)
  - Nausea [None]
  - Vomiting [None]
  - Pain [None]
  - Fatigue [None]
  - Headache [None]
  - Aphagia [None]
  - Gastrointestinal infection [None]
